FAERS Safety Report 8833697 (Version 2)
Quarter: 2015Q1

REPORT INFORMATION
  Report Type: Report from Study
  Country: US (occurrence: US)
  Receive Date: 20121010
  Receipt Date: 20150204
  Transmission Date: 20150721
  Serious: Yes (Hospitalization)
  Sender: FDA-Public Use
  Company Number: US-ROCHE-1132029

PATIENT
  Sex: Female
  Weight: 54.03 kg

DRUGS (12)
  1. RITUXAN [Suspect]
     Active Substance: RITUXIMAB
     Indication: NON-HODGKIN^S LYMPHOMA
     Route: 042
     Dates: start: 19990622
  2. DECADRON [Concomitant]
     Active Substance: DEXAMETHASONE
     Route: 042
  3. LEVSIN [Concomitant]
     Active Substance: HYOSCYAMINE SULFATE
     Dosage: 1-2
     Route: 065
  4. VITAMIN E [Concomitant]
     Active Substance: .ALPHA.-TOCOPHEROL
     Route: 065
  5. DEXEDRINE [Concomitant]
     Active Substance: DEXTROAMPHETAMINE SULFATE
     Indication: NARCOLEPSY
     Dosage: 1 EVERY MORNING AND 5 PILLS AT NOON
     Route: 065
  6. PREMARIN [Concomitant]
     Active Substance: ESTROGENS, CONJUGATED
     Route: 065
  7. ZOLOFT [Concomitant]
     Active Substance: SERTRALINE HYDROCHLORIDE
     Dosage: ONE-HALF PILL PER DAY
     Route: 065
  8. ALBUTEROL. [Concomitant]
     Active Substance: ALBUTEROL
     Dosage: 0.5CC
     Route: 065
  9. BENADRYL [Concomitant]
     Active Substance: DIPHENHYDRAMINE HYDROCHLORIDE
  10. BECONASE AQ [Concomitant]
     Active Substance: BECLOMETHASONE DIPROPIONATE MONOHYDRATE
     Dosage: 2 PUFFS
     Route: 065
  11. TYLENOL [Concomitant]
     Active Substance: ACETAMINOPHEN
  12. SYNTHROID [Concomitant]
     Active Substance: LEVOTHYROXINE SODIUM
     Route: 065

REACTIONS (12)
  - Peripheral swelling [Recovered/Resolved]
  - Oral herpes [Recovering/Resolving]
  - Decreased appetite [Recovering/Resolving]
  - Asthma [Recovering/Resolving]
  - Pulmonary congestion [Unknown]
  - Lymphadenopathy [Recovered/Resolved]
  - Bronchitis [Recovering/Resolving]
  - Disease progression [Unknown]
  - Night sweats [Recovered/Resolved]
  - Lymphoma [Unknown]
  - Lung infection [Unknown]
  - Fatigue [Recovering/Resolving]
